FAERS Safety Report 20496334 (Version 1)
Quarter: 2022Q1

REPORT INFORMATION
  Report Type: Spontaneous
  Country: DE (occurrence: DE)
  Receive Date: 20220221
  Receipt Date: 20220221
  Transmission Date: 20220423
  Serious: Yes (Hospitalization, Other)
  Sender: FDA-Public Use
  Company Number: DE-GLENMARK PHARMACEUTICALS-2022GMK069998

PATIENT

DRUGS (1)
  1. ATOVAQUONE\PROGUANIL HYDROCHLORIDE [Suspect]
     Active Substance: ATOVAQUONE\PROGUANIL HYDROCHLORIDE
     Indication: Malaria prophylaxis
     Dosage: 1 DOSAGE FORM, QD (ONE FILM COATED TABLET/DAY)
     Route: 048
     Dates: start: 20211221, end: 20220115

REACTIONS (3)
  - Osteomyelitis [Recovering/Resolving]
  - Intentional product use issue [Unknown]
  - Wrong technique in product usage process [Unknown]

NARRATIVE: CASE EVENT DATE: 20211201
